FAERS Safety Report 6680816-1 (Version None)
Quarter: 2010Q2

REPORT INFORMATION
  Report Type: 
  Country: None (occurrence: None)
  Receive Date: 20100414
  Receipt Date: 20100412
  Transmission Date: 20101027
  Serious: Yes (Death)
  Sender: FDA-Public Use
  Company Number: US-ASTRAZENECA-2009SE15038

PATIENT
  Age: 38 Year
  Sex: Male

DRUGS (7)
  1. SEROQUEL [Suspect]
     Dosage: 25MG AND 100 MG STRENGTH
     Route: 048
     Dates: start: 20040611
  2. ZOLOFT [Concomitant]
     Dates: start: 20040705
  3. PHENYTOIN [Concomitant]
     Dates: start: 20040705
  4. ATENOLOL [Concomitant]
     Dates: start: 20040611
  5. CARISOPRODOL [Concomitant]
     Dates: start: 20040615
  6. NEURONTIN [Concomitant]
     Dates: start: 20040621
  7. CYCLOBENZAPRINE [Concomitant]
     Dates: start: 20040623

REACTIONS (2)
  - DEATH [None]
  - DIABETES MELLITUS [None]
